FAERS Safety Report 6130456-8 (Version None)
Quarter: 2009Q1

REPORT INFORMATION
  Report Type: 
  Country: None (occurrence: None)
  Receive Date: 20090323
  Receipt Date: 20090309
  Transmission Date: 20090719
  Serious: No
  Sender: FDA-Public Use
  Company Number: 2009001663

PATIENT
  Age: 53 Year
  Sex: Male
  Weight: 100.6985 kg

DRUGS (7)
  1. FENTORA [Suspect]
     Indication: BACK PAIN
     Dosage: (200 MCG, QID AS NEEDED), BU
     Route: 002
     Dates: start: 20080301
  2. ATIVAN [Concomitant]
  3. BACLOFEN [Concomitant]
  4. MS CONTIN [Concomitant]
  5. MS CONTIN [Concomitant]
  6. TOFRANIL [Concomitant]
  7. PRIALT [Concomitant]

REACTIONS (4)
  - CONDITION AGGRAVATED [None]
  - DENTAL CARIES [None]
  - DRUG PRESCRIBING ERROR [None]
  - DRY MOUTH [None]
